FAERS Safety Report 10409327 (Version 1)
Quarter: 2014Q3

REPORT INFORMATION
  Report Type: Spontaneous
  Country: DK (occurrence: DK)
  Receive Date: 20140826
  Receipt Date: 20140826
  Transmission Date: 20150326
  Serious: Yes (Life-Threatening, Hospitalization)
  Sender: FDA-Public Use
  Company Number: DK-PFIZER INC-2014233546

PATIENT
  Age: 42 Year
  Sex: Female

DRUGS (4)
  1. DALACIN [Suspect]
     Active Substance: CLINDAMYCIN\CLINDAMYCIN PHOSPHATE
     Indication: DENTAL CARE
     Dosage: UNK
     Route: 048
     Dates: start: 20140626, end: 20140626
  2. MORFIN [Concomitant]
     Active Substance: MORPHINE SULFATE
     Indication: PAIN
     Dosage: UNK
     Dates: start: 201406
  3. IBUMETIN [Concomitant]
     Active Substance: IBUPROFEN
     Indication: PAIN
     Dosage: UNK
     Dates: start: 201406
  4. VEPICOMBIN NOVUM [Suspect]
     Active Substance: PENICILLIN V POTASSIUM
     Indication: DENTAL CARE
     Dosage: UNK
     Route: 048
     Dates: start: 20140612, end: 20140626

REACTIONS (4)
  - Ear swelling [Recovered/Resolved]
  - Lip swelling [Recovered/Resolved]
  - Urticaria [Unknown]
  - Angioedema [Recovered/Resolved]

NARRATIVE: CASE EVENT DATE: 201406
